FAERS Safety Report 15852827 (Version 2)
Quarter: 2019Q1

REPORT INFORMATION
  Report Type: Spontaneous
  Country: GB (occurrence: GB)
  Receive Date: 20190122
  Receipt Date: 20190308
  Transmission Date: 20190417
  Serious: Yes (Other)
  Sender: FDA-Public Use
  Company Number: PHHY2019GB008211

PATIENT
  Sex: Male

DRUGS (5)
  1. SIROLIMUS. [Interacting]
     Active Substance: SIROLIMUS
     Indication: SKIN CANCER
     Dosage: 1.5 MG, QD
     Route: 065
     Dates: start: 201509
  2. 5-FLUOROURACIL [Suspect]
     Active Substance: FLUOROURACIL
     Indication: NEOPLASM MALIGNANT
     Route: 061
  3. TACROLIMUS. [Suspect]
     Active Substance: TACROLIMUS
     Indication: RENAL TRANSPLANT
     Dosage: 0.5 MG, TID
     Route: 065
     Dates: start: 201509
  4. TACROLIMUS. [Suspect]
     Active Substance: TACROLIMUS
     Indication: PROPHYLAXIS AGAINST TRANSPLANT REJECTION
  5. ACITRETIN. [Interacting]
     Active Substance: ACITRETIN
     Indication: SKIN CANCER
     Dosage: UNK
     Route: 065

REACTIONS (4)
  - Drug interaction [Unknown]
  - Squamous cell carcinoma of skin [Unknown]
  - Skin erosion [Recovered/Resolved]
  - Impaired healing [Recovered/Resolved]
